FAERS Safety Report 10632718 (Version 2)
Quarter: 2014Q4

REPORT INFORMATION
  Report Type: Spontaneous
  Country: US (occurrence: US)
  Receive Date: 20141205
  Receipt Date: 20141205
  Transmission Date: 20150529
  Serious: No
  Sender: FDA-Public Use
  Company Number: US200910001477

PATIENT
  Age: 65 Year
  Sex: Female
  Weight: 90.02 kg

DRUGS (7)
  1. EXENATIDE 10MCG PEN, DISPOSABLE DEVICE [Concomitant]
     Active Substance: EXENATIDE
  2. PRECOSE [Concomitant]
     Active Substance: ACARBOSE
  3. FISH OIL [Concomitant]
     Active Substance: FISH OIL
  4. BYETTA [Suspect]
     Active Substance: EXENATIDE
     Indication: TYPE 2 DIABETES MELLITUS
     Dosage: LOT#C208232A,EXPDT:OCT15
     Route: 058
     Dates: start: 2007
  5. GLUCOPHAGE [Concomitant]
     Active Substance: METFORMIN HYDROCHLORIDE
  6. COZAAR [Concomitant]
     Active Substance: LOSARTAN POTASSIUM
  7. EXENATIDE 10MCG PEN, DISPOSABLE DEVICE [Concomitant]
     Active Substance: EXENATIDE

REACTIONS (6)
  - Hunger [Unknown]
  - Weight decreased [Unknown]
  - Incorrect dose administered [Unknown]
  - Device misuse [Unknown]
  - Product quality issue [Unknown]
  - Injection site pain [Unknown]

NARRATIVE: CASE EVENT DATE: 2009
